FAERS Safety Report 11869516 (Version 1)
Quarter: 2015Q4

REPORT INFORMATION
  Report Type: Report from Study
  Country: BR (occurrence: BR)
  Receive Date: 20151227
  Receipt Date: 20151227
  Transmission Date: 20160305
  Serious: Yes (Other)
  Sender: FDA-Public Use
  Company Number: BR-ROCHE-1330397

PATIENT
  Age: 50 Year
  Sex: Female
  Weight: 80 kg

DRUGS (8)
  1. ACTEMRA [Suspect]
     Active Substance: TOCILIZUMAB
     Route: 042
     Dates: start: 20141212, end: 201507
  2. MABTHERA [Suspect]
     Active Substance: RITUXIMAB
     Indication: RHEUMATOID ARTHRITIS
     Route: 042
     Dates: start: 20131016
  3. MABTHERA [Suspect]
     Active Substance: RITUXIMAB
     Dosage: LAST DOSE ON 28/APR/2014
     Route: 042
     Dates: start: 20131031
  4. LOSARTAN. [Suspect]
     Active Substance: LOSARTAN
     Indication: HYPERTENSION
     Route: 065
  5. PREDNISONE. [Concomitant]
     Active Substance: PREDNISONE
     Route: 065
  6. ACTEMRA [Suspect]
     Active Substance: TOCILIZUMAB
     Indication: RHEUMATOID ARTHRITIS
     Route: 042
     Dates: start: 20141105
  7. ACTEMRA [Suspect]
     Active Substance: TOCILIZUMAB
     Route: 042
     Dates: start: 20141205
  8. PREDNISONE. [Concomitant]
     Active Substance: PREDNISONE
     Dosage: AS REQUIRED
     Route: 065

REACTIONS (11)
  - Productive cough [Recovered/Resolved]
  - Vasculitis [Recovered/Resolved]
  - Pain [Recovering/Resolving]
  - Influenza [Not Recovered/Not Resolved]
  - Oedema [Recovering/Resolving]
  - Arthritis [Not Recovered/Not Resolved]
  - Sluggishness [Unknown]
  - Inflammation [Not Recovered/Not Resolved]
  - Cough [Unknown]
  - Blood pressure increased [Unknown]
  - Dry throat [Unknown]

NARRATIVE: CASE EVENT DATE: 201506
